FAERS Safety Report 24616487 (Version 1)
Quarter: 2024Q4

REPORT INFORMATION
  Report Type: Spontaneous
  Country: SE (occurrence: SE)
  Receive Date: 20241114
  Receipt Date: 20241114
  Transmission Date: 20250115
  Serious: Yes (Other)
  Sender: NOVO NORDISK
  Company Number: None

PATIENT
  Age: 31 Year
  Sex: Female
  Weight: 133 kg

DRUGS (7)
  1. OZEMPIC [Suspect]
     Active Substance: SEMAGLUTIDE
     Indication: Obesity
     Dosage: 0.25 MG, QW(1 INJECTION, ONE TIME WEEKLY. HAS TAKEN 0.5 FOR 2 WEEKS, BEFORE THAT 4 WEEKS ON 0.25 MG)
     Route: 058
     Dates: start: 20240829, end: 20240926
  2. OZEMPIC [Suspect]
     Active Substance: SEMAGLUTIDE
     Indication: Insulin resistance
     Dosage: 0.5 MG, QW(1 INJECTION, ONE TIME WEEKLY. HAS TAKEN 0.5 FOR 2 WEEKS, BEFORE THAT 4 WEEKS ON 0.25 MG)
     Route: 058
     Dates: start: 20240926, end: 20241018
  3. ACETAMINOPHEN [Concomitant]
     Active Substance: ACETAMINOPHEN
     Indication: Product used for unknown indication
     Dosage: 4-6 TABLETS PER DAY FOR ABOUT 4-5 DAYS
     Route: 048
     Dates: start: 20240724, end: 20240728
  4. IBUPROFEN [Concomitant]
     Active Substance: IBUPROFEN
     Indication: Product used for unknown indication
     Dosage: 1-2 PER DAY FOR APPROXIMATELY 4-5 DAYS
     Route: 048
     Dates: start: 20240724, end: 20240730
  5. PHENOXYMETHYLPENICILLIN CALCIUM [Concomitant]
     Active Substance: PHENOXYMETHYLPENICILLIN CALCIUM
     Indication: Product used for unknown indication
     Dosage: 1600 MG, TID (2 TABLETS, 3 TIMES DAILY FOR 7 DAYS)
     Route: 048
     Dates: start: 20240724, end: 20240730
  6. PHENOXYMETHYLPENICILLIN CALCIUM [Concomitant]
     Active Substance: PHENOXYMETHYLPENICILLIN CALCIUM
     Dosage: 2-4 PER DAY FOR 2-3 DAYS
     Route: 048
     Dates: start: 20240930, end: 20241003
  7. LISDEXAMFETAMINE DIMESYLATE [Concomitant]
     Active Substance: LISDEXAMFETAMINE DIMESYLATE
     Indication: Product used for unknown indication
     Dosage: 40 MG, QD(1 TABLET DAILY)
     Route: 048
     Dates: start: 20240819, end: 2024

REACTIONS (2)
  - Hepatic enzyme increased [Recovering/Resolving]
  - Product use in unapproved indication [Recovered/Resolved]

NARRATIVE: CASE EVENT DATE: 20240829
